FAERS Safety Report 9284951 (Version 1)
Quarter: 2013Q2

REPORT INFORMATION
  Report Type: Spontaneous
  Country: US (occurrence: US)
  Receive Date: 20130513
  Receipt Date: 20130513
  Transmission Date: 20140414
  Serious: Yes (Other)
  Sender: FDA-Public Use
  Company Number: PHEH2013US010211

PATIENT
  Sex: Female

DRUGS (2)
  1. DIOVAN HCT [Suspect]
     Dosage: 80/12.5 MG
  2. HYDROCHLOROTHIAZIDE,VALSARTAN [Suspect]
     Dosage: UNK UKN, UNK

REACTIONS (10)
  - Neoplasm malignant [Unknown]
  - Oesophageal disorder [Unknown]
  - Frustration [Unknown]
  - Malaise [Unknown]
  - Swelling [Unknown]
  - Bladder spasm [Unknown]
  - Unresponsive to stimuli [Unknown]
  - Headache [Unknown]
  - Cough [Unknown]
  - Drug intolerance [Unknown]
